FAERS Safety Report 9893529 (Version 2)
Quarter: 2014Q1

REPORT INFORMATION
  Report Type: Report from Study
  Country: JP (occurrence: JP)
  Receive Date: 20140213
  Receipt Date: 20140213
  Transmission Date: 20141002
  Serious: Yes (Death, Life-Threatening, Other)
  Sender: FDA-Public Use
  Company Number: JP-SA-THYM-1002910

PATIENT
  Age: 11 Year
  Sex: Male
  Weight: 39 kg

DRUGS (13)
  1. THYMOGLOBULINE [Suspect]
     Indication: APLASTIC ANAEMIA
     Dosage: 145 MG, QD
     Route: 042
     Dates: start: 20090831, end: 20090904
  2. CICLOSPORIN [Concomitant]
     Indication: APLASTIC ANAEMIA
     Dosage: UNK
     Dates: start: 20090826, end: 20100128
  3. CEFOZOPRAN HYDROCHLORIDE [Concomitant]
     Indication: FEBRILE NEUTROPENIA
     Dosage: UNK
     Dates: start: 20090908, end: 20100204
  4. MEROPENEM TRIHYDRATE [Concomitant]
     Indication: FEBRILE NEUTROPENIA
     Dosage: UNK
     Dates: start: 20090909, end: 20100127
  5. MINOCYCLINE HYDROCHLORIDE [Concomitant]
     Indication: FEBRILE NEUTROPENIA
     Dosage: UNK
     Dates: start: 20090909, end: 20100127
  6. MICAFUNGIN SODIUM [Concomitant]
     Indication: FUNGAEMIA
     Dosage: UNK
     Dates: start: 20090911, end: 20100127
  7. TEICOPLANIN [Concomitant]
     Indication: FEBRILE NEUTROPENIA
     Dosage: UNK
     Dates: start: 20090912, end: 20090924
  8. LENOGRASTIM [Concomitant]
     Indication: APLASTIC ANAEMIA
     Dosage: UNK
     Dates: start: 20090912, end: 20100201
  9. DALTEPARIN SODIUM [Concomitant]
     Indication: DISSEMINATED INTRAVASCULAR COAGULATION
     Dosage: UNK
     Dates: start: 20100120, end: 20100125
  10. BETAMIPRON/PANIPENEM [Concomitant]
     Indication: FEBRILE NEUTROPENIA
     Dosage: UNK
     Dates: start: 20100209, end: 20100214
  11. CEFTRIAXONE SODIUM [Concomitant]
     Indication: FEBRILE NEUTROPENIA
     Dosage: UNK
     Dates: start: 20100215, end: 20100221
  12. FUROSEMIDE [Concomitant]
     Indication: RENAL DISORDER
     Dosage: UNK
     Dates: start: 20100206, end: 20100219
  13. METHYLPREDNISOLONE SODIUM SUCCINATE [Concomitant]
     Indication: PREMEDICATION
     Dosage: UNK
     Dates: start: 20090831, end: 20090919

REACTIONS (7)
  - Brain herniation [Fatal]
  - Depressed level of consciousness [Fatal]
  - Antibody test positive [Not Recovered/Not Resolved]
  - Refractoriness to platelet transfusion [Fatal]
  - Haemorrhagic diathesis [Fatal]
  - Platelet count decreased [Fatal]
  - Brain stem haemorrhage [Fatal]
